FAERS Safety Report 8457626-8 (Version None)
Quarter: 2012Q2

REPORT INFORMATION
  Report Type: 
  Country: None (occurrence: None)
  Receive Date: 20120622
  Receipt Date: 20120612
  Transmission Date: 20120825
  Serious: Yes (Hospitalization)
  Sender: FDA-Public Use
  Company Number: JP-BRISTOL-MYERS SQUIBB COMPANY-16639601

PATIENT
  Age: 82 Year
  Sex: Male

DRUGS (4)
  1. METFORMIN HCL [Suspect]
     Indication: DIABETES MELLITUS
     Route: 048
     Dates: start: 20120301, end: 20120515
  2. JANUVIA [Suspect]
     Indication: DIABETES MELLITUS
     Route: 048
     Dates: start: 20120301, end: 20120515
  3. ENALAPRIL MALEATE [Concomitant]
     Indication: DIABETES MELLITUS
     Route: 048
     Dates: start: 20120301
  4. DONEPEZIL HCL [Concomitant]
     Indication: DEMENTIA
     Route: 048
     Dates: start: 20120515

REACTIONS (1)
  - APLASIA PURE RED CELL [None]
